FAERS Safety Report 8539192-1 (Version None)
Quarter: 2012Q3

REPORT INFORMATION
  Report Type: 
  Country: None (occurrence: None)
  Receive Date: 20120726
  Receipt Date: 20120625
  Transmission Date: 20120928
  Serious: No
  Sender: FDA-Public Use
  Company Number: US-BAYER-2012-074624

PATIENT
  Age: 69 Year
  Sex: Female
  Weight: 72.562 kg

DRUGS (7)
  1. ASCORBIC ACID [Concomitant]
  2. ASPIRIN [Concomitant]
     Indication: ISCHAEMIC HEART DISEASE PROPHYLAXIS
  3. METOPROLOL SUCCINATE [Concomitant]
  4. MULTI-VITAMINS [Concomitant]
  5. ALEVE (CAPLET) [Suspect]
     Indication: ARTHRITIS
     Dosage: 2 DF, QD
     Route: 048
     Dates: start: 20090101
  6. CALCIUM [Concomitant]
  7. FOSINOPRIL SODIUM [Concomitant]

REACTIONS (1)
  - NO ADVERSE EVENT [None]
